FAERS Safety Report 6460983-5 (Version None)
Quarter: 2009Q4

REPORT INFORMATION
  Report Type: 
  Country: None (occurrence: None)
  Receive Date: 20091130
  Receipt Date: 20091123
  Transmission Date: 20100525
  Serious: Yes (Other)
  Sender: FDA-Public Use
  Company Number: A0823493A

PATIENT
  Age: 10 Year
  Sex: Male

DRUGS (3)
  1. ADVAIR DISKUS 100/50 [Suspect]
     Indication: ASTHMA
     Dosage: 1PUFF TWICE PER DAY
     Route: 055
     Dates: start: 20091026, end: 20091118
  2. ALBUTEROL [Concomitant]
  3. SINGULAIR [Concomitant]

REACTIONS (6)
  - ASTHMA [None]
  - DRUG ADMINISTRATION ERROR [None]
  - DRUG INEFFECTIVE [None]
  - DYSPNOEA [None]
  - INHALATION THERAPY [None]
  - MIDDLE INSOMNIA [None]
